FAERS Safety Report 19749380 (Version 1)
Quarter: 2021Q3

REPORT INFORMATION
  Report Type: Spontaneous
  Country: US (occurrence: US)
  Receive Date: 20210824
  Receipt Date: 20210824
  Transmission Date: 20211014
  Serious: No
  Sender: FDA-Public Use
  Company Number: None

PATIENT

DRUGS (2)
  1. EPINEPHRINE INJECTION SOLUTION [Suspect]
     Active Substance: EPINEPHRINE
  2. EPINEPHRINE NASAL SOLUTION [Suspect]
     Active Substance: EPINEPHRINE

REACTIONS (4)
  - Product selection error [None]
  - Product preparation error [None]
  - Product label confusion [None]
  - Product barcode issue [None]
